FAERS Safety Report 4499904-3 (Version None)
Quarter: 2004Q4

REPORT INFORMATION
  Report Type: 
  Country: None (occurrence: None)
  Receive Date: 20041108
  Receipt Date: 20041017
  Transmission Date: 20050328
  Serious: Yes (Hospitalization)
  Sender: FDA-Public Use
  Company Number: A01200405179

PATIENT
  Age: 75 Year
  Sex: Male

DRUGS (2)
  1. XATRAL - (ALFUZOSIN) - TABLET - 5 MG [Suspect]
     Indication: PROSTATIC ADENOMA
     Dosage: 5 MG BID,; TIME TO ONSET: 3 MONTHS
     Route: 048
     Dates: start: 20040701, end: 20040901
  2. ANDROCUR - (CYPROTERONE ACETATE) - UNKNOWN - UNIT DOSE : UNKNOWN [Suspect]
     Indication: PROSTATE CANCER
     Dosage: 2 UNIT BID; TIME TO ONSET: 1 YEAR
     Route: 048
     Dates: start: 20030101, end: 20040101

REACTIONS (2)
  - DRUG INTERACTION [None]
  - HEPATIC FAILURE [None]
